FAERS Safety Report 5649520-2 (Version None)
Quarter: 2008Q1

REPORT INFORMATION
  Report Type: 
  Country: None (occurrence: None)
  Receive Date: 20080304
  Receipt Date: 20080222
  Transmission Date: 20080703
  Serious: Yes (Hospitalization)
  Sender: FDA-Public Use
  Company Number: US-PFIZER INC-2008017007

PATIENT
  Sex: Male

DRUGS (5)
  1. LIPITOR [Suspect]
     Indication: BLOOD CHOLESTEROL
  2. STATINS [Suspect]
     Indication: BLOOD CHOLESTEROL
  3. CARDIAC THERAPY [Suspect]
     Indication: CARDIAC DISORDER
  4. CARDIOVASCULAR SYSTEM DRUGS [Suspect]
     Indication: ARRHYTHMIA
  5. PREPARATION H /USA/ [Suspect]

REACTIONS (2)
  - ABNORMAL FAECES [None]
  - VASCULAR GRAFT [None]
